FAERS Safety Report 5473933-5 (Version None)
Quarter: 2007Q3

REPORT INFORMATION
  Report Type: 
  Country: None (occurrence: None)
  Receive Date: 20070831
  Receipt Date: 20070605
  Transmission Date: 20080115
  Serious: No
  Sender: FDA-Public Use
  Company Number: 242478

PATIENT
  Sex: Male

DRUGS (5)
  1. LUCENTIS [Suspect]
     Indication: MACULAR DEGENERATION
     Dates: start: 20061201
  2. NEURONTIN [Concomitant]
  3. XALATAN [Concomitant]
  4. PRILOSEC [Concomitant]
  5. ZOCOR [Concomitant]

REACTIONS (1)
  - VISUAL DISTURBANCE [None]
